FAERS Safety Report 9897517 (Version 2)
Quarter: 2014Q4

REPORT INFORMATION
  Report Type: Spontaneous
  Country: US (occurrence: US)
  Receive Date: 20140214
  Receipt Date: 20141209
  Transmission Date: 20150529
  Serious: Yes (Hospitalization)
  Sender: FDA-Public Use
  Company Number: US-BAYER-2014-023559

PATIENT
  Age: 23 Year
  Sex: Female
  Weight: 120.18 kg

DRUGS (3)
  1. CEFTRIAXONE. [Concomitant]
     Active Substance: CEFTRIAXONE
  2. KETOROLAC [Concomitant]
     Active Substance: KETOROLAC\KETOROLAC TROMETHAMINE
  3. MIRENA [Suspect]
     Active Substance: LEVONORGESTREL
     Indication: CONTRACEPTION
     Dosage: 20 MCG/24HR, CONT
     Route: 015
     Dates: start: 20111208, end: 20130426

REACTIONS (7)
  - Device failure [None]
  - Medical device discomfort [None]
  - Scar [None]
  - Injury [None]
  - Medical device pain [None]
  - Uterine perforation [None]
  - Procedural pain [None]

NARRATIVE: CASE EVENT DATE: 20130426
